FAERS Safety Report 14651700 (Version 1)
Quarter: 2018Q1

REPORT INFORMATION
  Report Type: Spontaneous
  Country: DE (occurrence: DE)
  Receive Date: 20180317
  Receipt Date: 20180317
  Transmission Date: 20180509
  Serious: Yes (Hospitalization)
  Sender: FDA-Public Use
  Company Number: DE-AUROBINDO-AUR-APL-2018-014068

PATIENT
  Age: 5 Year
  Sex: Male
  Weight: 34 kg

DRUGS (11)
  1. L-THYROXIN [Concomitant]
     Active Substance: LEVOTHYROXINE SODIUM
     Indication: PRODUCT USED FOR UNKNOWN INDICATION
     Dosage: 50 MICROGRAM, ONCE A DAY, DOSAGE FORM: UNSPECIFIED
     Route: 065
  2. HYDROCORTISONE. [Concomitant]
     Active Substance: HYDROCORTISONE
     Indication: PRODUCT USED FOR UNKNOWN INDICATION
     Dosage: 10 MILLIGRAM, ONCE A DAY, DOSAGE FORM: UNSPECIFIED, 5-2.5-2.5
     Route: 065
  3. CLOBAZAM [Suspect]
     Active Substance: CLOBAZAM
     Dosage: 9 MILLIGRAM, DOSAGE FORM: UNSPECIFIED
     Route: 048
  4. CLOBAZAM [Suspect]
     Active Substance: CLOBAZAM
     Dosage: 7 MILLIGRAM, ONCE A DAY, DOSAGE FORM: UNSPECIFIED
     Route: 048
  5. CLOBAZAM [Suspect]
     Active Substance: CLOBAZAM
     Indication: EPILEPSY
     Dosage: 11 MILLIGRAM, ONCE A DAY, DOSAGE FORM: UNSPECIFIED, 3-0-8
     Route: 048
  6. VALPROATE [Suspect]
     Active Substance: VALPROIC ACID
     Dosage: 1075 MILLIGRAM, ONCE A DAY, DOSAGE FORM: UNSPECIFIED, 475-0-600
     Route: 048
  7. TOPIRAMATE. [Suspect]
     Active Substance: TOPIRAMATE
     Indication: PRODUCT USED FOR UNKNOWN INDICATION
     Dosage: 120 MILLIGRAM, ONCE A DAY, DOSAGE FORM: UNSPECIFIED, 60 MG TWICE A DAY
     Route: 048
  8. VALPROATE [Suspect]
     Active Substance: VALPROIC ACID
     Indication: EPILEPSY
     Dosage: 825 MILLIGRAM, ONCE A DAY, DOSAGE FORM: UNSPECIFIED
     Route: 048
  9. CIRCADIN [Concomitant]
     Active Substance: MELATONIN
     Indication: PRODUCT USED FOR UNKNOWN INDICATION
     Dosage: 6 MILLIGRAM, ONCE A DAY, DOSAGE FORM: UNSPECIFIED
     Route: 065
  10. SALBUTAMOL [Suspect]
     Active Substance: ALBUTEROL
     Indication: EPILEPSY
     Dosage: 4 DOSAGE FORM, TWO TIMES A DAY, DOSAGE FORM: UNSPECIFIED
     Route: 065
  11. SULTIAME [Suspect]
     Active Substance: SULTHIAME
     Indication: EPILEPSY
     Dosage: 200 MILLIGRAM, ONCE A DAY, DOSAGE FORM: UNSPECIFIED
     Route: 048

REACTIONS (4)
  - Disturbance in attention [Recovered/Resolved]
  - Bronchitis [Recovering/Resolving]
  - Epilepsy [Recovered/Resolved]
  - Drug intolerance [Unknown]

NARRATIVE: CASE EVENT DATE: 20160703
